FAERS Safety Report 13419192 (Version 2)
Quarter: 2018Q1

REPORT INFORMATION
  Report Type: Spontaneous
  Country: US (occurrence: US)
  Receive Date: 20170407
  Receipt Date: 20180118
  Transmission Date: 20180508
  Serious: No
  Sender: FDA-Public Use
  Company Number: US-JNJFOC-20170320451

PATIENT
  Sex: Male

DRUGS (6)
  1. RISPERDAL [Suspect]
     Active Substance: RISPERIDONE
     Indication: AUTISM SPECTRUM DISORDER
     Dosage: IN VARYING DOSE OF 3 MG AND 4 MG TWICE A DAY
     Route: 048
     Dates: start: 20010301, end: 20020425
  2. RISPERDAL [Suspect]
     Active Substance: RISPERIDONE
     Indication: AUTISM SPECTRUM DISORDER
     Dosage: IN VARYING DOSE OF 3 MG AND 4 MG TWICE A DAY
     Route: 048
     Dates: start: 20021024, end: 20040115
  3. RISPERDAL [Suspect]
     Active Substance: RISPERIDONE
     Indication: AUTISM SPECTRUM DISORDER
     Dosage: IN VARYING DOSE OF 1 MG, 2 MG AND 3 MG OF VARYING FREQUENCY
     Route: 048
     Dates: start: 19990826, end: 20010109
  4. RISPERIDONE. [Suspect]
     Active Substance: RISPERIDONE
     Indication: AUTISM SPECTRUM DISORDER
     Route: 048
     Dates: start: 20090410, end: 20140513
  5. RISPERDAL [Suspect]
     Active Substance: RISPERIDONE
     Indication: AUTISM SPECTRUM DISORDER
     Route: 048
     Dates: end: 201307
  6. RISPERDAL [Suspect]
     Active Substance: RISPERIDONE
     Indication: AUTISM SPECTRUM DISORDER
     Dosage: IN VARYING DOSE OF 2 MG, 3 MG AND 4 MG OF VARYING FREQUENCY
     Route: 048
     Dates: start: 20040408, end: 20090306

REACTIONS (2)
  - Emotional disorder [Unknown]
  - Gynaecomastia [Unknown]
